FAERS Safety Report 6236620-1 (Version None)
Quarter: 2009Q2

REPORT INFORMATION
  Report Type: 
  Country: None (occurrence: None)
  Receive Date: 20090619
  Receipt Date: 20080730
  Transmission Date: 20091009
  Serious: No
  Sender: FDA-Public Use
  Company Number: CA-ASTRAZENECA-2008UW15119

PATIENT
  Age: 85 Year
  Sex: Male

DRUGS (7)
  1. ATACAND [Suspect]
     Route: 048
     Dates: start: 20080601
  2. MAGNESIUM SULFATE [Concomitant]
  3. CALCIUM [Concomitant]
  4. VITAMIN D [Concomitant]
  5. ASPIRIN [Concomitant]
  6. VITAMIN B-12 [Concomitant]
  7. SLEEPING PILL [Concomitant]

REACTIONS (1)
  - TINNITUS [None]
